FAERS Safety Report 8230894-3 (Version None)
Quarter: 2012Q1

REPORT INFORMATION
  Report Type: 
  Country: None (occurrence: None)
  Receive Date: 20120321
  Receipt Date: 20120305
  Transmission Date: 20120608
  Serious: Yes (Other)
  Sender: FDA-Public Use
  Company Number: US-GDP-12412972

PATIENT
  Sex: Female
  Weight: 67 kg

DRUGS (5)
  1. CALCIUM CARBONATE [Concomitant]
  2. DIOVAN [Concomitant]
  3. CLOBEX [Suspect]
     Indication: RASH
     Dosage: (1 DF BID TOPICAL)
     Route: 061
     Dates: start: 20111111, end: 20111128
  4. VYTORIN [Concomitant]
  5. CENTRUM SILVER /01292501/ [Concomitant]

REACTIONS (8)
  - BLISTER [None]
  - SCAR [None]
  - RASH MACULAR [None]
  - ERYTHEMA [None]
  - SCAB [None]
  - SKIN BURNING SENSATION [None]
  - SKIN DISCOLOURATION [None]
  - TELANGIECTASIA [None]
